FAERS Safety Report 8056255-8 (Version None)
Quarter: 2012Q1

REPORT INFORMATION
  Report Type: 
  Country: None (occurrence: None)
  Receive Date: 20120119
  Receipt Date: 20120111
  Transmission Date: 20120608
  Serious: Yes (Life-Threatening, Other)
  Sender: FDA-Public Use
  Company Number: US-BAYER-2010-002194

PATIENT
  Age: 41 Year
  Sex: Female
  Weight: 87.075 kg

DRUGS (5)
  1. TRICOR [Concomitant]
     Dosage: 145 MG, UNK
     Route: 048
  2. ASPIRIN [Concomitant]
     Dosage: 81 MG, UNK
     Route: 048
  3. PRAVACHOL [Concomitant]
     Dosage: 40 MG, UNK
     Route: 048
  4. YASMIN [Suspect]
     Indication: CONTRACEPTION
     Dosage: UNK
     Dates: start: 20061101, end: 20070201
  5. IUD NOS [Concomitant]

REACTIONS (5)
  - DEEP VEIN THROMBOSIS [None]
  - THROMBOSIS [None]
  - CHOLECYSTITIS CHRONIC [None]
  - GALLBLADDER INJURY [None]
  - PULMONARY EMBOLISM [None]
